FAERS Safety Report 22296861 (Version 1)
Quarter: 2023Q2

REPORT INFORMATION
  Report Type: Spontaneous
  Country: IT (occurrence: IT)
  Receive Date: 20230509
  Receipt Date: 20230509
  Transmission Date: 20230721
  Serious: Yes (Hospitalization, Other)
  Sender: FDA-Public Use
  Company Number: IT-MINISAL02-921489

PATIENT
  Age: 23 Year
  Sex: Female

DRUGS (2)
  1. IBUPROFEN [Suspect]
     Active Substance: IBUPROFEN
     Indication: Product used for unknown indication
     Dosage: 4 GRAM (1 TOTAL)
     Route: 048
     Dates: start: 20221221
  2. KETOPROFEN LYSINE [Suspect]
     Active Substance: KETOPROFEN LYSINE
     Indication: Product used for unknown indication
     Dosage: 2.4 GRAM (TOTAL)
     Route: 048
     Dates: start: 20221221

REACTIONS (5)
  - Gastric ulcer [Unknown]
  - Gastritis erosive [Unknown]
  - Drug abuse [Recovered/Resolved with Sequelae]
  - Reactive gastropathy [Unknown]
  - Toxicity to various agents [Recovered/Resolved with Sequelae]

NARRATIVE: CASE EVENT DATE: 20221221
